FAERS Safety Report 19132120 (Version 1)
Quarter: 2021Q2

REPORT INFORMATION
  Report Type: Spontaneous
  Country: GB (occurrence: GB)
  Receive Date: 20210413
  Receipt Date: 20210413
  Transmission Date: 20210717
  Serious: Yes (Other)
  Sender: FDA-Public Use
  Company Number: GB-TEVA-2021-XI-1981501

PATIENT
  Age: 42 Year
  Sex: Female
  Weight: 63.5 kg

DRUGS (2)
  1. TAMOXIFEN [Suspect]
     Active Substance: TAMOXIFEN
     Indication: BREAST CANCER
     Dosage: 30MG
     Route: 048
     Dates: start: 20210114
  2. TAMOXIFEN [Suspect]
     Active Substance: TAMOXIFEN
     Dosage: 30 MG
     Route: 048

REACTIONS (1)
  - Candida infection [Not Recovered/Not Resolved]

NARRATIVE: CASE EVENT DATE: 20210210
